FAERS Safety Report 25739168 (Version 1)
Quarter: 2025Q3

REPORT INFORMATION
  Report Type: Spontaneous
  Country: US (occurrence: US)
  Receive Date: 20250829
  Receipt Date: 20250829
  Transmission Date: 20251020
  Serious: No
  Sender: JOHNSON AND JOHNSON
  Company Number: US-JNJFOC-20250833487

PATIENT

DRUGS (1)
  1. SPRAVATO [Suspect]
     Active Substance: ESKETAMINE
     Indication: Product used for unknown indication
     Route: 045

REACTIONS (6)
  - Gait disturbance [Unknown]
  - Balance disorder [Unknown]
  - Feeling drunk [Unknown]
  - Paraesthesia [Unknown]
  - Feeling abnormal [Unknown]
  - Off label use [Unknown]
